FAERS Safety Report 10950631 (Version 1)
Quarter: 2015Q1

REPORT INFORMATION
  Report Type: Spontaneous
  Country: JP (occurrence: JP)
  Receive Date: 20150324
  Receipt Date: 20150324
  Transmission Date: 20150721
  Serious: Yes (Other)
  Sender: FDA-Public Use
  Company Number: JP-PFIZER INC-2015085772

PATIENT
  Age: 60 Year
  Sex: Male

DRUGS (3)
  1. SUTENT [Suspect]
     Active Substance: SUNITINIB MALATE
     Indication: RENAL CELL CARCINOMA
     Dosage: UNK, CYCLIC
     Dates: start: 20120418, end: 2012
  2. SUTENT [Suspect]
     Active Substance: SUNITINIB MALATE
     Dosage: 3DF, CYCLIC (3P, 3-WEEK ADMINISTRATION AND 2-WEEK DRUG CESSATION)
     Dates: start: 2012, end: 2012
  3. SUTENT [Suspect]
     Active Substance: SUNITINIB MALATE
     Dosage: 2 DF, CYCLIC (2P, 3-WEEK ADMINISTRATION AND 2-WEEK DRUG CESSATION)
     Dates: start: 2012, end: 20130401

REACTIONS (2)
  - Palmar-plantar erythrodysaesthesia syndrome [Unknown]
  - Bone marrow failure [Unknown]

NARRATIVE: CASE EVENT DATE: 201206
